FAERS Safety Report 14712877 (Version 1)
Quarter: 2018Q2

REPORT INFORMATION
  Report Type: Spontaneous
  Country: FR (occurrence: FR)
  Receive Date: 20180404
  Receipt Date: 20180404
  Transmission Date: 20180711
  Serious: Yes (Hospitalization, Other)
  Sender: FDA-Public Use
  Company Number: FR-MERCK KGAA-2045072

PATIENT
  Age: 55 Year
  Sex: Female

DRUGS (1)
  1. NOVOTHYROX [Suspect]
     Active Substance: LEVOTHYROXINE SODIUM
     Indication: POST PROCEDURAL HYPOTHYROIDISM
     Dates: start: 201703

REACTIONS (38)
  - Pain [None]
  - Irritability [None]
  - Anxiety [None]
  - General physical health deterioration [None]
  - Gingivitis [None]
  - Loss of libido [None]
  - Back pain [None]
  - Myalgia [None]
  - Vomiting [None]
  - Impaired driving ability [None]
  - Gastric disorder [None]
  - Dependence [None]
  - Headache [None]
  - Feeling of despair [None]
  - Spinal pain [None]
  - Blood thyroid stimulating hormone decreased [None]
  - Blood thyroid stimulating hormone increased [None]
  - Negative thoughts [None]
  - Alopecia [None]
  - Heart rate increased [None]
  - Bone pain [None]
  - Dizziness [None]
  - Metastases to bone [None]
  - Weight decreased [None]
  - Fatigue [None]
  - Hypokinesia [None]
  - Dysphagia [None]
  - Abdominal pain upper [None]
  - Depression [None]
  - Osteonecrosis [None]
  - Decreased appetite [None]
  - Asthenia [None]
  - Dyspnoea [None]
  - Visual impairment [None]
  - Social avoidant behaviour [None]
  - Apathy [None]
  - Fear of disease [None]
  - Loss of personal independence in daily activities [None]

NARRATIVE: CASE EVENT DATE: 201707
